FAERS Safety Report 4850045-2 (Version None)
Quarter: 2005Q4

REPORT INFORMATION
  Report Type: 
  Country: None (occurrence: None)
  Receive Date: 20051123
  Receipt Date: 20041115
  Transmission Date: 20060501
  Serious: Yes (Disabling)
  Sender: FDA-Public Use
  Company Number: 2004093154

PATIENT
  Age: 75 Year
  Sex: Male
  Weight: 61.2356 kg

DRUGS (4)
  1. LIPITOR [Suspect]
     Indication: BLOOD CHOLESTEROL
     Dosage: 10 MG (10 MG, 1 IN 2 D), ORAL
     Route: 048
  2. OLMESARTAN MEDOXOMIL (OLMESARTAN MEDOXOMIL) [Concomitant]
  3. ALL OTHER THERAPEUTIC PRODUCTS (ALL OTHER THERAPEUTIC PRODUCTS) [Concomitant]
  4. CHLORPHENAMINE MALEATE (CHLORPHENAMINE MALEATE) [Concomitant]

REACTIONS (1)
  - MUSCULOSKELETAL CHEST PAIN [None]
